FAERS Safety Report 8508149-9 (Version None)
Quarter: 2012Q2

REPORT INFORMATION
  Report Type: 
  Country: None (occurrence: None)
  Receive Date: 20120405
  Receipt Date: 20090825
  Transmission Date: 20120825
  Serious: Yes (Other)
  Sender: FDA-Public Use
  Company Number: PHEH2009US09883

PATIENT
  Sex: Female

DRUGS (3)
  1. CALCIUM [Concomitant]
  2. PREMARIN [Concomitant]
  3. RECLAST [Suspect]
     Dosage: INFUSION
     Dates: start: 20090821

REACTIONS (6)
  - PELVIC PAIN [None]
  - TREMOR [None]
  - PAIN IN EXTREMITY [None]
  - ARTHRALGIA [None]
  - BACK PAIN [None]
  - PYREXIA [None]
